FAERS Safety Report 21968111 (Version 1)
Quarter: 2023Q1

REPORT INFORMATION
  Report Type: Spontaneous
  Country: US (occurrence: US)
  Receive Date: 20230208
  Receipt Date: 20230208
  Transmission Date: 20230417
  Serious: No
  Sender: FDA-Public Use
  Company Number: US-PFIZER INC-202300053790

PATIENT
  Age: 65 Year
  Sex: Female

DRUGS (11)
  1. PAXLOVID [Suspect]
     Active Substance: NIRMATRELVIR\RITONAVIR
     Indication: COVID-19 treatment
     Dosage: UNK
     Dates: start: 20230124, end: 20230129
  2. BUPROPION HYDROCHLORIDE XL [Concomitant]
     Active Substance: BUPROPION HYDROCHLORIDE
     Dosage: UNK
     Dates: start: 20230124, end: 20230204
  3. PANTOPRAZOLE SODIUM [Concomitant]
     Active Substance: PANTOPRAZOLE SODIUM
     Dosage: UNK
     Dates: start: 20230110, end: 20230204
  4. ATORVASTATIN CALCIUM ANHYDROUS [Concomitant]
     Active Substance: ATORVASTATIN CALCIUM ANHYDROUS
     Dosage: UNK
     Dates: start: 20230110, end: 20230124
  5. VALACYCLOVIR [Concomitant]
     Active Substance: VALACYCLOVIR HYDROCHLORIDE
     Dosage: UNK
     Dates: start: 20230110, end: 20230123
  6. VITAMIN D3 [Concomitant]
     Active Substance: CHOLECALCIFEROL
     Dosage: UNK
     Dates: start: 20230110, end: 20230204
  7. NATURE MADE B12 VITAMIN [Concomitant]
     Dosage: UNK
     Dates: start: 20230110, end: 20230204
  8. NATROL BIOTIN BEAUTY [Concomitant]
     Dosage: UNK
     Dates: start: 20230110, end: 20230204
  9. CRANBERRY [Concomitant]
     Active Substance: CRANBERRY
     Dosage: UNK
     Dates: start: 20230110, end: 20230204
  10. NATROL MELATONIN [Concomitant]
     Dosage: UNK
     Dates: start: 20230110, end: 20230204
  11. ALLERTEC [CETIRIZINE] [Concomitant]
     Dosage: UNK
     Dates: start: 20230110, end: 20230204

REACTIONS (2)
  - COVID-19 [Recovering/Resolving]
  - Disease recurrence [Recovering/Resolving]

NARRATIVE: CASE EVENT DATE: 20230203
